FAERS Safety Report 6344279-8 (Version None)
Quarter: 2009Q3

REPORT INFORMATION
  Report Type: 
  Country: None (occurrence: None)
  Receive Date: 20090908
  Receipt Date: 20090824
  Transmission Date: 20100115
  Serious: Yes (Death)
  Sender: FDA-Public Use
  Company Number: DE-PFIZER INC-2009258892

PATIENT
  Age: 55 Year

DRUGS (2)
  1. DOXEPIN HCL [Suspect]
  2. CITALOPRAM [Suspect]

REACTIONS (1)
  - DEATH [None]
